FAERS Safety Report 8673938 (Version 3)
Quarter: 2013Q4

REPORT INFORMATION
  Report Type: Spontaneous
  Country: US (occurrence: US)
  Receive Date: 20120703
  Receipt Date: 20131031
  Transmission Date: 20140711
  Serious: Yes (Hospitalization)
  Sender: FDA-Public Use
  Company Number: US-009507513-2012SP035060

PATIENT
  Age: 44 Year
  Sex: Female

DRUGS (5)
  1. ASMANEX TWISTHALER [Suspect]
     Indication: ASTHMA
     Dates: end: 201108
  2. ADVAIR [Suspect]
     Indication: ASTHMA
     Dosage: 2 DF, BID
     Route: 055
     Dates: start: 201202, end: 20120531
  3. ADVAIR [Suspect]
     Dosage: 1 DF, BID
     Route: 055
  4. FORADIL [Suspect]
     Indication: ASTHMA
     Dates: end: 201108
  5. INTERFERON (UNSPECIFIED) [Concomitant]
     Indication: PRODUCT USED FOR UNKNOWN INDICATION

REACTIONS (7)
  - Transient ischaemic attack [Recovered/Resolved]
  - Swollen tongue [Recovered/Resolved]
  - Glossodynia [Recovered/Resolved]
  - Aphonia [Recovered/Resolved]
  - Candida infection [Recovered/Resolved]
  - Cough [Recovered/Resolved]
  - Wheezing [Recovered/Resolved]
